FAERS Safety Report 21232591 (Version 1)
Quarter: 2022Q3

REPORT INFORMATION
  Report Type: Spontaneous
  Country: US (occurrence: US)
  Receive Date: 20220819
  Receipt Date: 20220819
  Transmission Date: 20221027
  Serious: No
  Sender: FDA-Public Use
  Company Number: US-drreddys-SPO/USA/22/0153365

PATIENT
  Sex: Male

DRUGS (1)
  1. CIPROFLOXACIN AND DEXAMETHASONE [Suspect]
     Active Substance: CIPROFLOXACIN HYDROCHLORIDE\DEXAMETHASONE
     Indication: Product used for unknown indication
     Dosage: 0.3 PERCENT AND 0.1 PERCENT

REACTIONS (2)
  - Underdose [Unknown]
  - Product quality issue [Unknown]
